FAERS Safety Report 7762089-1 (Version None)
Quarter: 2011Q3

REPORT INFORMATION
  Report Type: 
  Country: None (occurrence: None)
  Receive Date: 20110920
  Receipt Date: 20110920
  Transmission Date: 20111222
  Serious: Yes (Life-Threatening, Hospitalization)
  Sender: FDA-Public Use
  Company Number: None

PATIENT
  Age: 44 Year
  Sex: Female
  Weight: 64.4 kg

DRUGS (14)
  1. ATIVAN [Concomitant]
  2. PHYTONADIONE -AQUA-MEPHYTON [Concomitant]
  3. SODIUM CHLORIDE [Concomitant]
  4. DEXTROSE 5% / PANTOPRAZOLE [Concomitant]
  5. SANDOSTATIN [Concomitant]
  6. DEXTROSE 5% / ACETYLCYSTEINE [Concomitant]
  7. CALCIUM GLUCONATE [Concomitant]
  8. MULTIVITAMINS / FOLIC ACID / THIAMINE [Concomitant]
  9. ZOFRAN [Suspect]
     Dosage: 8 MG -4 ML-
     Route: 042
     Dates: start: 20110909, end: 20110909
  10. MAGNESIUM SULFATE 50% [Concomitant]
  11. ZOSYN [Concomitant]
  12. HYDROMORPHONE HCL -DILAUDID- [Concomitant]
  13. LACTULOSE CEPHULAC [Concomitant]
  14. POTASSIUM CHLORIDE [Concomitant]

REACTIONS (1)
  - VENTRICULAR TACHYCARDIA [None]
